FAERS Safety Report 25861791 (Version 2)
Quarter: 2025Q4

REPORT INFORMATION
  Report Type: Report from Study
  Country: US (occurrence: US)
  Receive Date: 20250930
  Receipt Date: 20251105
  Transmission Date: 20260117
  Serious: Yes (Other)
  Sender: ROCHE
  Company Number: US-ROCHE-10000391400

PATIENT
  Age: 34 Year
  Sex: Female
  Weight: 54.4 kg

DRUGS (16)
  1. OCREVUS [Suspect]
     Active Substance: OCRELIZUMAB
     Indication: Multiple sclerosis
     Route: 042
     Dates: start: 20210428, end: 20210512
  2. OCREVUS [Suspect]
     Active Substance: OCRELIZUMAB
     Dosage: SUBSEQUENT DOSAGES OF OCRELIZUMAB: 02-MAY-2022, 08-MAY-2023, 15-NOV-2023
     Route: 042
     Dates: start: 20210512, end: 20240920
  3. OCREVUS [Suspect]
     Active Substance: OCRELIZUMAB
     Route: 042
     Dates: start: 20250528
  4. DIAZEPAM [Concomitant]
     Active Substance: DIAZEPAM
     Indication: Anxiety
     Dosage: 1-2 TABLETS BEFORE INFUSION/MRI
     Route: 048
     Dates: start: 20210824, end: 20210824
  5. DIAZEPAM [Concomitant]
     Active Substance: DIAZEPAM
     Dosage: 1-2 TABLETS BEFORE INFUSION/MRI
     Route: 048
     Dates: start: 20250212
  6. DIAZEPAM [Concomitant]
     Active Substance: DIAZEPAM
     Dosage: 1-2 TABLETS BEFORE INFUSION/MRI
     Route: 048
     Dates: start: 20230808, end: 20240419
  7. DEXTROAMPHETAMINE [Concomitant]
     Active Substance: DEXTROAMPHETAMINE
     Indication: Multiple sclerosis
     Dosage: 1-2.5 TABLETS, DAILY
     Dates: start: 20220305, end: 20220810
  8. DEXTROAMPHETAMINE [Concomitant]
     Active Substance: DEXTROAMPHETAMINE
     Indication: Anxiety
     Dosage: 1-2.5 TABS DAILY
     Route: 048
     Dates: start: 20230323
  9. DEXTROAMPHETAMINE [Concomitant]
     Active Substance: DEXTROAMPHETAMINE
     Dosage: 1-2.5 TABLETS, DAILY
     Dates: start: 20210305, end: 20220810
  10. TYLENOL [Concomitant]
     Active Substance: ACETAMINOPHEN
     Route: 048
     Dates: end: 20220502
  11. MAGNESIUM [Concomitant]
     Active Substance: MAGNESIUM
     Route: 048
     Dates: start: 20220826
  12. METHOTREXATE [Concomitant]
     Active Substance: METHOTREXATE
     Dates: start: 20240302, end: 20240302
  13. CLONAZEPAM [Concomitant]
     Active Substance: CLONAZEPAM
     Indication: Anxiety
     Dates: start: 20200623, end: 20220810
  14. CLONAZEPAM [Concomitant]
     Active Substance: CLONAZEPAM
     Dates: start: 20230808
  15. Lactobacillus acidophilus (PROBIOTIC PO) [Concomitant]
     Dates: start: 20220826
  16. prenatal vit no.124/iron/folic (PRENATAL VITAMIN PO) [Concomitant]
     Dates: start: 20220810

REACTIONS (2)
  - Abortion spontaneous [Unknown]
  - Maternal exposure before pregnancy [Unknown]

NARRATIVE: CASE EVENT DATE: 20250123
